FAERS Safety Report 10846415 (Version 1)
Quarter: 2015Q1

REPORT INFORMATION
  Report Type: Report from Study
  Country: PR (occurrence: PR)
  Receive Date: 20150220
  Receipt Date: 20150220
  Transmission Date: 20150721
  Serious: No
  Sender: FDA-Public Use
  Company Number: PR-ABBVIE-15K-131-1339762-00

PATIENT
  Sex: Male

DRUGS (3)
  1. HUMIRA [Suspect]
     Active Substance: ADALIMUMAB
     Route: 058
     Dates: start: 201409, end: 201411
  2. HUMIRA [Suspect]
     Active Substance: ADALIMUMAB
     Indication: RHEUMATOID ARTHRITIS
     Route: 058
     Dates: start: 2007, end: 201409
  3. HUMIRA [Suspect]
     Active Substance: ADALIMUMAB
     Route: 058
     Dates: start: 201411

REACTIONS (7)
  - Synovial cyst [Unknown]
  - Ear infection [Unknown]
  - Malaise [Unknown]
  - Drug prescribing error [Unknown]
  - Red blood cell sedimentation rate increased [Unknown]
  - Unevaluable event [Unknown]
  - Peau d^orange [Unknown]

NARRATIVE: CASE EVENT DATE: 2014
